FAERS Safety Report 5206915-9 (Version None)
Quarter: 2007Q1

REPORT INFORMATION
  Report Type: 
  Country: None (occurrence: None)
  Receive Date: 20070105
  Receipt Date: 20070105
  Transmission Date: 20070707
  Serious: Yes (Life-Threatening)
  Sender: FDA-Public Use
  Company Number: None

PATIENT
  Age: 43 Year
  Sex: Female
  Weight: 70.4 kg

DRUGS (11)
  1. HEPARIN [Suspect]
     Indication: PROPHYLAXIS
     Dosage: 5000 U SQ EVERY 8 HOUR
     Route: 058
     Dates: start: 20061014, end: 20061017
  2. FENTANYL TRANSDERMAL SYSTEM [Concomitant]
  3. TEMAZEPAM [Concomitant]
  4. METOPROLOL SUCCINATE [Concomitant]
  5. DOCUSATE [Concomitant]
  6. LANSOPRAZOLE [Concomitant]
  7. MORPHINE [Concomitant]
  8. NYSTATIN [Concomitant]
  9. HYDROMORPHONE HCL [Concomitant]
  10. CEFEPIME [Concomitant]
  11. VANCOMYCIN [Concomitant]

REACTIONS (3)
  - DEEP VEIN THROMBOSIS [None]
  - PLATELET COUNT DECREASED [None]
  - SUBCLAVIAN VEIN THROMBOSIS [None]
